FAERS Safety Report 13978139 (Version 1)
Quarter: 2017Q3

REPORT INFORMATION
  Report Type: Spontaneous
  Country: UG (occurrence: UG)
  Receive Date: 20170915
  Receipt Date: 20170915
  Transmission Date: 20171128
  Serious: Yes (Other)
  Sender: FDA-Public Use
  Company Number: UG-CIPLA LTD.-2017UG16293

PATIENT

DRUGS (2)
  1. TENOFOVIR/LAMIVUDINE/EFAVIRENZ [Suspect]
     Active Substance: EFAVIRENZ\LAMIVUDINE\TENOFOVIR
     Dosage: UNK (MYLAN BRAND)
     Route: 065
  2. TENOFOVIR/LAMIVUDINE/EFAVIRENZ [Suspect]
     Active Substance: EFAVIRENZ\LAMIVUDINE\TENOFOVIR
     Dosage: 300/300/600 MG, UNK (CIPLA BRAND)
     Route: 065

REACTIONS (3)
  - Lip erythema [Unknown]
  - Burning sensation [Unknown]
  - Product substitution issue [Unknown]
